FAERS Safety Report 22172167 (Version 2)
Quarter: 2023Q2

REPORT INFORMATION
  Report Type: Report from Study
  Country: US (occurrence: US)
  Receive Date: 20230404
  Receipt Date: 20230411
  Transmission Date: 20230722
  Serious: No
  Sender: FDA-Public Use
  Company Number: US-002147023-NVSC2023US073735

PATIENT
  Sex: Female

DRUGS (1)
  1. KESIMPTA [Suspect]
     Active Substance: OFATUMUMAB
     Indication: Product used for unknown indication
     Dosage: UNK
     Route: 065

REACTIONS (7)
  - Chest discomfort [Unknown]
  - Neuralgia [Unknown]
  - Feeling abnormal [Unknown]
  - Joint stiffness [Unknown]
  - Hypokinesia [Unknown]
  - Swollen tongue [Unknown]
  - Vomiting [Unknown]
